FAERS Safety Report 9606084 (Version 1)
Quarter: 2013Q4

REPORT INFORMATION
  Report Type: Spontaneous
  Country: US (occurrence: US)
  Receive Date: 20131008
  Receipt Date: 20131008
  Transmission Date: 20140711
  Serious: No
  Sender: FDA-Public Use
  Company Number: US-AMGEN-USASP2013041621

PATIENT
  Age: 74 Year
  Sex: Male

DRUGS (5)
  1. PROLIA [Suspect]
     Indication: OSTEOPOROSIS
     Dosage: 60 MG, Q6MO
     Dates: start: 201212
  2. PROLIA [Suspect]
     Dosage: UNK
     Dates: start: 201306
  3. ASPIRIN [Concomitant]
  4. VITAMIN D                          /00107901/ [Concomitant]
  5. TUMS 500 CALCIUM [Concomitant]

REACTIONS (1)
  - Rash erythematous [Not Recovered/Not Resolved]
